FAERS Safety Report 11529341 (Version 1)
Quarter: 2015Q3

REPORT INFORMATION
  Report Type: Spontaneous
  Country: US (occurrence: None)
  Receive Date: 20150918
  Receipt Date: 20150918
  Transmission Date: 20151125
  Serious: No
  Sender: FDA-Public Use
  Company Number: None

PATIENT
  Age: 55 Year
  Sex: Female

DRUGS (2)
  1. LORAZEPAM. [Suspect]
     Active Substance: LORAZEPAM
     Indication: ANXIETY
     Dosage: 2 MG  ONCE  PO
     Route: 048
     Dates: start: 20150630, end: 20150630
  2. LORAZEPAM. [Suspect]
     Active Substance: LORAZEPAM
     Indication: NUCLEAR MAGNETIC RESONANCE IMAGING
     Dosage: 2 MG  ONCE  PO
     Route: 048
     Dates: start: 20150630, end: 20150630

REACTIONS (2)
  - Hallucination [None]
  - Sedation [None]

NARRATIVE: CASE EVENT DATE: 20150630
